FAERS Safety Report 12315620 (Version 2)
Quarter: 2016Q2

REPORT INFORMATION
  Report Type: Spontaneous
  Country: US (occurrence: US)
  Receive Date: 20160428
  Receipt Date: 20160519
  Transmission Date: 20160815
  Serious: No
  Sender: FDA-Public Use
  Company Number: US-ACTELION PHARMACEUTICALS US, INC.-A-US2016-134629

PATIENT
  Age: 52 Year
  Sex: Male

DRUGS (4)
  1. UPTRAVI [Suspect]
     Active Substance: SELEXIPAG
     Dosage: UNK MCG, UNK
     Route: 048
  2. AMBRISENTAN [Suspect]
     Active Substance: AMBRISENTAN
     Indication: PRODUCT USED FOR UNKNOWN INDICATION
     Dosage: 5 MG, QD
     Route: 048
     Dates: start: 20140915
  3. RIOCIGUAT [Suspect]
     Active Substance: RIOCIGUAT
     Indication: PRODUCT USED FOR UNKNOWN INDICATION
     Route: 065
  4. UPTRAVI [Suspect]
     Active Substance: SELEXIPAG
     Indication: PRODUCT USED FOR UNKNOWN INDICATION
     Dosage: 400 MCG, UNK
     Route: 048

REACTIONS (7)
  - Headache [Unknown]
  - Arthralgia [Unknown]
  - Pain in extremity [Unknown]
  - Hypotension [Unknown]
  - Dizziness [Unknown]
  - Nausea [Unknown]
  - Cough [Unknown]
